FAERS Safety Report 6906674-5 (Version None)
Quarter: 2010Q3

REPORT INFORMATION
  Report Type: 
  Country: None (occurrence: None)
  Receive Date: 20100804
  Receipt Date: 20100802
  Transmission Date: 20110219
  Serious: Yes (Other)
  Sender: FDA-Public Use
  Company Number: US-ROXANE LABORATORIES, INC.-2010-RO-00948RO

PATIENT
  Age: 30 Year
  Sex: Male

DRUGS (8)
  1. LORAZEPAM [Suspect]
     Indication: AGITATION
  2. LORAZEPAM [Suspect]
  3. MORPHINE [Suspect]
  4. MIDAZOLAM HCL [Suspect]
  5. BUPRENORPHINE HCL AND NALOXONE HCL [Suspect]
     Indication: DRUG ABUSE
  6. BUPRENORPHINE HCL AND NALOXONE HCL [Suspect]
     Indication: ANALGESIC THERAPY
  7. HALOPERIDOL [Suspect]
     Indication: AGITATION
  8. HALOPERIDOL [Suspect]

REACTIONS (1)
  - DELIRIUM [None]
